FAERS Safety Report 9557530 (Version 2)
Quarter: 2013Q3

REPORT INFORMATION
  Report Type: Spontaneous
  Country: US (occurrence: US)
  Receive Date: 20130926
  Receipt Date: 20130926
  Transmission Date: 20140515
  Serious: Yes (Other)
  Sender: FDA-Public Use
  Company Number: US-PFIZER INC-2013252013

PATIENT
  Age: 63 Year
  Sex: Male

DRUGS (3)
  1. BOSULIF [Suspect]
     Indication: CHRONIC MYELOID LEUKAEMIA
     Dosage: 200 MG, 1X/DAY (TWO 100 MG TABLETS, ONCE DAILY)
     Dates: start: 201307
  2. GLUCOPHAGE [Concomitant]
     Dosage: UNK
  3. METFORMIN [Concomitant]
     Dosage: UNK

REACTIONS (2)
  - Pertussis [Unknown]
  - Renal failure [Unknown]
